FAERS Safety Report 5521451-8 (Version None)
Quarter: 2007Q4

REPORT INFORMATION
  Report Type: 
  Country: None (occurrence: None)
  Receive Date: 20071119
  Receipt Date: 20071112
  Transmission Date: 20080405
  Serious: Yes (Death, Other)
  Sender: FDA-Public Use
  Company Number: US-PFIZER INC-2007047364

PATIENT
  Sex: Male
  Weight: 109 kg

DRUGS (1)
  1. BEXTRA [Suspect]
     Route: 048
     Dates: start: 19990115, end: 20020210

REACTIONS (2)
  - CEREBROVASCULAR ACCIDENT [None]
  - RENAL FAILURE [None]
